FAERS Safety Report 5893331-X (Version None)
Quarter: 2008Q3

REPORT INFORMATION
  Report Type: 
  Country: None (occurrence: None)
  Receive Date: 20080922
  Receipt Date: 20080922
  Transmission Date: 20090109
  Serious: Yes (Other)
  Sender: FDA-Public Use
  Company Number: None

PATIENT
  Age: 45 Year
  Sex: Male
  Weight: 68.0396 kg

DRUGS (2)
  1. ZICAM COLD REMEDY NASAL GEL [Suspect]
     Indication: INFLUENZA
     Dosage: 1 DOSE TWICE A DAY NASAL
     Route: 045
     Dates: start: 20080519, end: 20080522
  2. ZICAM COLD REMEDY NASAL GEL [Suspect]
     Indication: NASOPHARYNGITIS
     Dosage: 1 DOSE TWICE A DAY NASAL
     Route: 045
     Dates: start: 20080519, end: 20080522

REACTIONS (3)
  - AGEUSIA [None]
  - ANOSMIA [None]
  - PHARMACEUTICAL PRODUCT COMPLAINT [None]
